FAERS Safety Report 7323087-5 (Version None)
Quarter: 2011Q1

REPORT INFORMATION
  Report Type: 
  Country: None (occurrence: None)
  Receive Date: 20110301
  Receipt Date: 20110216
  Transmission Date: 20110831
  Serious: Yes (Other)
  Sender: FDA-Public Use
  Company Number: PHHY2010FR90287

PATIENT
  Sex: Female

DRUGS (1)
  1. FEMARA [Suspect]
     Dosage: UNK

REACTIONS (4)
  - CHRONIC MYELOID LEUKAEMIA [None]
  - LYMPHOCYTE COUNT INCREASED [None]
  - NEUTROPENIA [None]
  - MONOCYTE COUNT INCREASED [None]
